FAERS Safety Report 11654871 (Version 2)
Quarter: 2015Q4

REPORT INFORMATION
  Report Type: Spontaneous
  Country: US (occurrence: US)
  Receive Date: 20151023
  Receipt Date: 20151229
  Transmission Date: 20160304
  Serious: Yes (Other)
  Sender: FDA-Public Use
  Company Number: US-BAYER-2015-446036

PATIENT
  Age: 30 Year
  Sex: Female

DRUGS (2)
  1. MIRENA [Suspect]
     Active Substance: LEVONORGESTREL
     Indication: CONTRACEPTION
     Dosage: 20 MCG/24HR, CONT
     Route: 015
     Dates: start: 20100825, end: 20121026
  2. NUVARING [Concomitant]
     Active Substance: ETHINYL ESTRADIOL\ETONOGESTREL
     Dosage: UNK

REACTIONS (9)
  - Uterine perforation [None]
  - Dyspareunia [None]
  - Abdominal pain lower [None]
  - Procedural pain [None]
  - Abortion spontaneous [None]
  - Injury [None]
  - Maternal exposure before pregnancy [None]
  - Menstruation irregular [None]
  - Device use error [None]

NARRATIVE: CASE EVENT DATE: 201204
